FAERS Safety Report 5578729-1 (Version None)
Quarter: 2007Q4

REPORT INFORMATION
  Report Type: 
  Country: None (occurrence: None)
  Receive Date: 20071226
  Receipt Date: 20071217
  Transmission Date: 20080405
  Serious: Yes (Other)
  Sender: FDA-Public Use
  Company Number: 2007337799

PATIENT
  Age: 41 Year
  Sex: Female
  Weight: 54.4316 kg

DRUGS (1)
  1. VISINE EYE DROPS [Suspect]
     Indication: DRY EYE
     Dosage: UNSPECIFIED, OPHTHALMIC
     Route: 047
     Dates: start: 20071216

REACTIONS (1)
  - EYE IRRITATION [None]
